FAERS Safety Report 21170656 (Version 1)
Quarter: 2022Q3

REPORT INFORMATION
  Report Type: Spontaneous
  Country: US (occurrence: None)
  Receive Date: 20220803
  Receipt Date: 20220803
  Transmission Date: 20221026
  Serious: Yes (Other)
  Sender: FDA-Public Use
  Company Number: None

PATIENT
  Age: 52 Year
  Sex: Female
  Weight: 75.75 kg

DRUGS (2)
  1. MESALAMINE [Suspect]
     Active Substance: MESALAMINE
     Indication: Colitis ulcerative
     Dosage: OTHER QUANTITY : 2.4-4.8 GM;?FREQUENCY : DAILY;?
     Route: 048
     Dates: start: 2009
  2. ASACOL HD [Suspect]
     Active Substance: MESALAMINE
     Indication: Colitis ulcerative
     Dosage: FREQUENCY : DAILY;?
     Route: 048
     Dates: start: 201311, end: 201508

REACTIONS (3)
  - Irritable bowel syndrome [None]
  - Therapy cessation [None]
  - Colitis ulcerative [None]
